FAERS Safety Report 23357972 (Version 1)
Quarter: 2024Q1

REPORT INFORMATION
  Report Type: Spontaneous
  Country: US (occurrence: None)
  Receive Date: 20240101
  Receipt Date: 20240101
  Transmission Date: 20240409
  Serious: No
  Sender: FDA-Public Use
  Company Number: None

PATIENT
  Age: 26 Year
  Sex: Female

DRUGS (1)
  1. TRUVADA [Suspect]
     Active Substance: EMTRICITABINE\TENOFOVIR DISOPROXIL FUMARATE
     Dosage: FREQUENCY : DAILY;?
     Route: 048
     Dates: start: 20231116, end: 20231226

REACTIONS (3)
  - Pain [None]
  - Hyperhidrosis [None]
  - Adverse drug reaction [None]

NARRATIVE: CASE EVENT DATE: 20231227
